FAERS Safety Report 9073221 (Version 1)
Quarter: 2013Q1

REPORT INFORMATION
  Report Type: Report from Study
  Country: US (occurrence: US)
  Receive Date: 20130129
  Receipt Date: 20130129
  Transmission Date: 20140127
  Serious: No
  Sender: FDA-Public Use
  Company Number: US-ABBOTT-12P-163-0919025-00

PATIENT
  Age: 47 None
  Sex: Female
  Weight: 70.82 kg

DRUGS (7)
  1. LANSOPRAZOLE DR [Concomitant]
     Indication: GASTROOESOPHAGEAL REFLUX DISEASE
  2. FLAGYL [Concomitant]
     Indication: CROHN^S DISEASE
     Route: 042
     Dates: end: 2012
  3. FLAGYL [Concomitant]
     Route: 048
     Dates: start: 2012
  4. HUMIRA 40 MG/0.8 ML PEN [Suspect]
     Indication: CROHN^S DISEASE
     Dosage: ONE DOSE
     Dates: start: 20120228, end: 20120228
  5. HUMIRA 40 MG/0.8 ML PEN [Suspect]
     Dosage: ONE DOSE
     Dates: start: 20120314, end: 20120314
  6. MOXIFLOXACIN [Suspect]
     Indication: CROHN^S DISEASE
     Dates: start: 20120313, end: 20120320
  7. PREDNISONE [Concomitant]
     Indication: CROHN^S DISEASE

REACTIONS (2)
  - Hypoaesthesia [Not Recovered/Not Resolved]
  - Paraesthesia [Not Recovered/Not Resolved]
